FAERS Safety Report 7770069-5 (Version None)
Quarter: 2011Q3

REPORT INFORMATION
  Report Type: 
  Country: None (occurrence: None)
  Receive Date: 20110922
  Receipt Date: 20100902
  Transmission Date: 20111222
  Serious: No
  Sender: FDA-Public Use
  Company Number: US-ASTRAZENECA-2010SE41624

PATIENT
  Age: 48 Year
  Sex: Male
  Weight: 88.9 kg

DRUGS (1)
  1. SEROQUEL XR [Suspect]
     Indication: SCHIZOPHRENIA
     Route: 048
     Dates: start: 20100101, end: 20100101

REACTIONS (2)
  - SUSPICIOUSNESS [None]
  - DRUG DOSE OMISSION [None]
